FAERS Safety Report 5827688-2 (Version None)
Quarter: 2008Q3

REPORT INFORMATION
  Report Type: 
  Country: None (occurrence: None)
  Receive Date: 20080728
  Receipt Date: 20080724
  Transmission Date: 20090109
  Serious: Yes (Death, Life-Threatening, Hospitalization)
  Sender: FDA-Public Use
  Company Number: 009-C5013-07080303

PATIENT
  Age: 84 Year
  Sex: Male
  Weight: 65 kg

DRUGS (22)
  1. CC-5013\PLACEBO(LENALIDOMIDE) (CAPSULES) [Suspect]
     Indication: MULTIPLE MYELOMA
     Dosage: 10 MG, D1-21 OF EACH CYCLE, ORAL
     Route: 048
     Dates: start: 20070727, end: 20070731
  2. MELPHALAN (MELPHALAN) [Suspect]
     Indication: MULTIPLE MYELOMA
     Dosage: 12 MG, D1-4 OF EACH CYCLE, ORAL
     Route: 048
     Dates: start: 20070727, end: 20070731
  3. PREDNISONE [Suspect]
     Indication: MULTIPLE MYELOMA
     Dosage: 130 MG, D1-4 OF EACH CYCLE, ORAL
     Route: 048
     Dates: start: 20070727, end: 20070731
  4. METOPROLOL TARTRATE [Concomitant]
  5. AMLODIPINE [Concomitant]
  6. SPASMOLYT (TROSPIUM CHLORIDE) [Concomitant]
  7. GUTALAX (SODIUM PICOSULFATE) (DROPS) [Concomitant]
  8. MYCOSTATIN [Concomitant]
  9. PANTOPRAZOLE SODIUM [Concomitant]
  10. MOVICOL (NULYTELY) [Concomitant]
  11. ACETYLSALICYLIC ACID SRT [Concomitant]
  12. NOVALGIN (METAMIZOLE SODIUM) [Concomitant]
  13. MEXALEN (PARACETAMOL) [Concomitant]
  14. HYDAL (HYDROMORPHONE HYDROCHLORIDE) [Concomitant]
  15. NEURONTIN [Concomitant]
  16. KONAKION [Concomitant]
  17. FRAXIPARIN (HEPARIN-FRACTION, CALCIUM SALT) [Concomitant]
  18. ERYPO (EPOETIN ALFA) [Concomitant]
  19. VENDAL (MORPHINE HYDROCHLORIDE) [Concomitant]
  20. SODIUM CHLORIDE [Concomitant]
  21. GEWACALM/NACL (DIAZEPAM) [Concomitant]
  22. GLANDOMED [Concomitant]

REACTIONS (13)
  - ARTHRALGIA [None]
  - CARDIOVASCULAR INSUFFICIENCY [None]
  - FALL [None]
  - GENERAL PHYSICAL HEALTH DETERIORATION [None]
  - HAEMATOCRIT DECREASED [None]
  - HAEMOGLOBIN DECREASED [None]
  - HAEMORRHAGE [None]
  - MUSCLE HAEMORRHAGE [None]
  - NO THERAPEUTIC RESPONSE [None]
  - PANCYTOPENIA [None]
  - PLEURAL EFFUSION [None]
  - PYREXIA [None]
  - RENAL FAILURE ACUTE [None]
